FAERS Safety Report 11062238 (Version 1)
Quarter: 2015Q2

REPORT INFORMATION
  Report Type: Spontaneous
  Country: JP (occurrence: None)
  Receive Date: 20150422
  Receipt Date: 20150422
  Transmission Date: 20150821
  Serious: Yes (Disabling)
  Sender: FDA-Public Use
  Company Number: PR 7935

PATIENT
  Age: 35 Year
  Sex: Male

DRUGS (8)
  1. C CYSTEN (CARBOCYSTEINE) [Concomitant]
  2. ZIOPTAN [Suspect]
     Active Substance: TAFLUPROST
     Indication: OPEN ANGLE GLAUCOMA
     Dosage: SINGLE, OU
     Dates: start: 20130316
  3. MEIACT (CEFDITOREN PIVOXIL) [Concomitant]
     Active Substance: CEFDITOREN PIVOXIL
  4. PRANLUKAST [Concomitant]
     Active Substance: PRANLUKAST
  5. MEDICON (DEXTROMETHORPHAN HYDROBROMIDE) [Concomitant]
     Active Substance: DEXTROMETHORPHAN HYDROBROMIDE
  6. DORZOLAMIDE HYDROCHLORIDE (+) TIMOLOL MALEATE [Concomitant]
     Active Substance: DORZOLAMIDE HYDROCHLORIDE\TIMOLOL MALEATE
  7. TIMOLOL MALEATE. [Concomitant]
     Active Substance: TIMOLOL MALEATE
  8. ALLEGRA (FEXOFENADINE HYDROCHLORIDE) [Concomitant]

REACTIONS (4)
  - Rhinitis [None]
  - Gastroenteritis viral [None]
  - Nasopharyngitis [None]
  - Visual field defect [None]

NARRATIVE: CASE EVENT DATE: 20130712
